FAERS Safety Report 4523839-0 (Version None)
Quarter: 2004Q4

REPORT INFORMATION
  Report Type: 
  Country: None (occurrence: None)
  Receive Date: 20041210
  Receipt Date: 20041210
  Transmission Date: 20050328
  Serious: Yes (Life-Threatening, Hospitalization, Disabling)
  Sender: FDA-Public Use
  Company Number: None

PATIENT
  Age: 56 Year
  Sex: Female
  Weight: 74.3899 kg

DRUGS (3)
  1. HESPAN 1-LITER  ALBUMIN ? [Suspect]
     Indication: HAEMORRHAGE
     Dosage: IV
     Route: 042
     Dates: start: 20000104, end: 20000107
  2. HESPAN 1-LITER  ALBUMIN ? [Suspect]
     Indication: SHOCK
     Dosage: IV
     Route: 042
     Dates: start: 20000104, end: 20000107
  3. HEPARIN [Suspect]

REACTIONS (12)
  - ANEURYSM [None]
  - BRADYCARDIA [None]
  - CARDIAC DISORDER [None]
  - DIZZINESS [None]
  - DYSPNOEA [None]
  - FATIGUE [None]
  - MICROANGIOPATHY [None]
  - MUSCULOSKELETAL STIFFNESS [None]
  - NEUROPATHY [None]
  - OEDEMA [None]
  - PAIN [None]
  - TRANSIENT ISCHAEMIC ATTACK [None]
